FAERS Safety Report 4289099-3 (Version None)
Quarter: 2004Q1

REPORT INFORMATION
  Report Type: 
  Country: None (occurrence: None)
  Receive Date: 20040126
  Receipt Date: 20031007
  Transmission Date: 20041129
  Serious: No
  Sender: FDA-Public Use
  Company Number: USA030332679

PATIENT
  Age: 71 Year
  Sex: Female
  Weight: 45 kg

DRUGS (6)
  1. FORTEO [Suspect]
     Indication: OSTEOPOROSIS
     Dosage: 20 UG/DAY
     Dates: start: 20030325
  2. DIGITEK(DIGOXIN0 [Concomitant]
  3. TOPROL-XL [Concomitant]
  4. VERAPAMIL [Concomitant]
  5. ACETYLSALICYLIC ACID SRT [Concomitant]
  6. PROGESTERONE [Concomitant]

REACTIONS (19)
  - ANXIETY [None]
  - BALANCE DISORDER [None]
  - CARDIOACTIVE DRUG LEVEL INCREASED [None]
  - CONFUSIONAL STATE [None]
  - DISCOMFORT [None]
  - DISTURBANCE IN ATTENTION [None]
  - DIZZINESS [None]
  - DYSGEUSIA [None]
  - HEADACHE [None]
  - HEART RATE INCREASED [None]
  - HEART RATE IRREGULAR [None]
  - ILL-DEFINED DISORDER [None]
  - NAUSEA [None]
  - POOR PERIPHERAL CIRCULATION [None]
  - RASH [None]
  - TINNITUS [None]
  - VERTIGO [None]
  - VISION BLURRED [None]
  - WEIGHT DECREASED [None]
